FAERS Safety Report 24805019 (Version 2)
Quarter: 2025Q1

REPORT INFORMATION
  Report Type: Spontaneous
  Country: CN (occurrence: CN)
  Receive Date: 20250103
  Receipt Date: 20250107
  Transmission Date: 20250408
  Serious: Yes (Life-Threatening, Other)
  Sender: BAYER HEALTHCARE PHARMACEUTICALS INC.
  Company Number: CN-BAYER-2025A000993

PATIENT
  Age: 57 Year
  Sex: Female
  Weight: 55 kg

DRUGS (1)
  1. ULTRAVIST [Suspect]
     Active Substance: IOPROMIDE
     Indication: Computerised tomogram abdomen
     Route: 042
     Dates: start: 20241218, end: 20241218

REACTIONS (10)
  - Anaphylactic shock [Recovering/Resolving]
  - Mental fatigue [Recovered/Resolved]
  - Blood pressure decreased [Recovering/Resolving]
  - Blood pressure immeasurable [Recovered/Resolved]
  - Dysphonia [None]
  - Cough [None]
  - Hypoaesthesia oral [None]
  - Lip pruritus [None]
  - Vomiting [None]
  - Oxygen saturation decreased [Recovered/Resolved]

NARRATIVE: CASE EVENT DATE: 20241218
